FAERS Safety Report 20692724 (Version 1)
Quarter: 2022Q2

REPORT INFORMATION
  Report Type: Spontaneous
  Country: VE (occurrence: VE)
  Receive Date: 20220409
  Receipt Date: 20220409
  Transmission Date: 20220720
  Serious: Yes (Death, Other)
  Sender: FDA-Public Use
  Company Number: VE-NOVARTISPH-NVSC2021VE221117

PATIENT
  Sex: Female

DRUGS (1)
  1. GLIVEC [Suspect]
     Active Substance: IMATINIB MESYLATE
     Indication: Chronic myeloid leukaemia
     Dosage: 400 MG (4X100 MG TABLETS)
     Route: 065

REACTIONS (7)
  - Infarction [Fatal]
  - Subdural haematoma [Unknown]
  - Loss of consciousness [Unknown]
  - Headache [Unknown]
  - Malaise [Unknown]
  - Vomiting [Unknown]
  - Oedema peripheral [Unknown]
